FAERS Safety Report 11424496 (Version 1)
Quarter: 2015Q3

REPORT INFORMATION
  Report Type: Report from Study
  Country: CO (occurrence: CO)
  Receive Date: 20150827
  Receipt Date: 20150827
  Transmission Date: 20151125
  Serious: Yes (Death)
  Sender: FDA-Public Use
  Company Number: CO-ASTRAZENECA-2015SE81095

PATIENT
  Sex: Female

DRUGS (1)
  1. BRILINTA [Suspect]
     Active Substance: TICAGRELOR
     Indication: INFARCTION
     Route: 048
     Dates: start: 20150806, end: 20150814

REACTIONS (2)
  - Cardio-respiratory arrest [Fatal]
  - Cardiac tamponade [Fatal]

NARRATIVE: CASE EVENT DATE: 20150814
